FAERS Safety Report 10971639 (Version 2)
Quarter: 2015Q2

REPORT INFORMATION
  Report Type: Spontaneous
  Country: UY (occurrence: UY)
  Receive Date: 20150331
  Receipt Date: 20150416
  Transmission Date: 20150821
  Serious: Yes (Hospitalization, Other)
  Sender: FDA-Public Use
  Company Number: UY-BAYER-2015-062923

PATIENT
  Age: 61 Year
  Sex: Male

DRUGS (1)
  1. NEXAVAR [Suspect]
     Active Substance: SORAFENIB
     Indication: RENAL CANCER METASTATIC
     Dosage: UNK
     Dates: start: 20150123, end: 20150309

REACTIONS (4)
  - Subileus [None]
  - Abdominal pain [None]
  - Peritonitis [None]
  - Large intestine perforation [None]

NARRATIVE: CASE EVENT DATE: 20150309
